FAERS Safety Report 5042523-0 (Version None)
Quarter: 2006Q2

REPORT INFORMATION
  Report Type: 
  Country: None (occurrence: None)
  Receive Date: 20060627
  Receipt Date: 20060609
  Transmission Date: 20061013
  Serious: Yes (Other)
  Sender: FDA-Public Use
  Company Number: BR-2006-014923

PATIENT
  Age: 39 Year
  Sex: Female

DRUGS (2)
  1. BETASERON [Suspect]
     Indication: MULTIPLE SCLEROSIS
     Dosage: 1 ML, UNK, SUBCUTANEOUS
     Route: 058
     Dates: start: 19960101
  2. BETASERON [Suspect]
     Indication: MULTIPLE SCLEROSIS
     Dosage: 1 ML, UNK, SUBCUTANEOUS
     Route: 058
     Dates: start: 20050101

REACTIONS (2)
  - INJECTION SITE HAEMORRHAGE [None]
  - OPEN FRACTURE [None]
